FAERS Safety Report 9826883 (Version 1)
Quarter: 2014Q1

REPORT INFORMATION
  Report Type: Report from Study
  Country: US (occurrence: US)
  Receive Date: 20140117
  Receipt Date: 20140117
  Transmission Date: 20141002
  Serious: Yes (Hospitalization)
  Sender: FDA-Public Use
  Company Number: US-PFIZER INC-2014008156

PATIENT
  Age: 65 Year
  Sex: Male

DRUGS (8)
  1. OXALIPLATIN [Suspect]
     Indication: COLORECTAL CANCER METASTATIC
     Dosage: 65 MG/M2, EVERY 2 WEEKS
     Route: 042
     Dates: start: 20130919, end: 20131105
  2. OXALIPLATIN [Suspect]
     Dosage: UNK
     Route: 042
     Dates: start: 20131203
  3. FLUOROURACIL [Suspect]
     Indication: COLORECTAL CANCER METASTATIC
     Dosage: 2400 MG/M2, EVERY 2 WEEKS
     Route: 042
     Dates: start: 20130919, end: 20131105
  4. IRINOTECAN HCL [Suspect]
     Indication: COLORECTAL CANCER METASTATIC
     Dosage: 120 MG/M2, EVERY 2 WEEKS
     Route: 042
     Dates: start: 20130919, end: 20131105
  5. IRINOTECAN HCL [Suspect]
     Dosage: UNK
     Route: 042
     Dates: start: 20131203
  6. LEUCOVORIN [Suspect]
     Indication: COLORECTAL CANCER METASTATIC
     Dosage: 185 MG, EVERY 2 WEEKS
     Route: 042
     Dates: start: 20130919, end: 20131105
  7. BEVACIZUMAB [Suspect]
     Indication: COLORECTAL CANCER METASTATIC
     Dosage: 5 MG/KG, EVERY 2 WEEKS
     Route: 042
     Dates: start: 20130919, end: 20131105
  8. BEVACIZUMAB [Suspect]
     Dosage: UNK
     Route: 042
     Dates: start: 20131203

REACTIONS (2)
  - Pulmonary embolism [Not Recovered/Not Resolved]
  - Deep vein thrombosis [Not Recovered/Not Resolved]
